FAERS Safety Report 10066709 (Version 1)
Quarter: 2014Q2

REPORT INFORMATION
  Report Type: Spontaneous
  Country: US (occurrence: US)
  Receive Date: 20140408
  Receipt Date: 20140408
  Transmission Date: 20141212
  Serious: Yes (Death)
  Sender: FDA-Public Use
  Company Number: US-B.I. PHARMACEUTICALS,INC./RIDGEFIELD-2014-BI-15872BP

PATIENT
  Age: 68 Year
  Sex: Male

DRUGS (2)
  1. GILOTRIF [Suspect]
     Indication: NON-SMALL CELL LUNG CANCER
     Dosage: 40 MG
     Route: 048
     Dates: start: 20140214, end: 20140328
  2. TARCEVA [Concomitant]
     Indication: NON-SMALL CELL LUNG CANCER
     Route: 065

REACTIONS (3)
  - Lung neoplasm malignant [Fatal]
  - Liver injury [Fatal]
  - Off label use [Recovered/Resolved]
